FAERS Safety Report 9557499 (Version 1)
Quarter: 2013Q3

REPORT INFORMATION
  Report Type: Spontaneous
  Country: US (occurrence: None)
  Receive Date: 20130724
  Receipt Date: 20130724
  Transmission Date: 20140515
  Serious: Yes (Other)
  Sender: FDA-Public Use
  Company Number: PHEH2013US006552

PATIENT
  Sex: Female

DRUGS (5)
  1. GILENYA [Suspect]
     Indication: MULTIPLE SCLEROSIS
     Route: 048
  2. CELEXA (CITALOPRAM HYDROBROMIDE) [Concomitant]
  3. SYNTHROID (LEVOTHYROXINE SODIUM) [Concomitant]
  4. VIT C (ASCORBIC ACID, CALCIUM) [Concomitant]
  5. VITA K (PHYTOMENADIONE) [Concomitant]

REACTIONS (1)
  - Flushing [None]
